FAERS Safety Report 5843214-6 (Version None)
Quarter: 2008Q3

REPORT INFORMATION
  Report Type: 
  Country: None (occurrence: None)
  Receive Date: 20080813
  Receipt Date: 20080804
  Transmission Date: 20090109
  Serious: Yes (Hospitalization)
  Sender: FDA-Public Use
  Company Number: PHHY2008FR16928

PATIENT
  Sex: Female

DRUGS (10)
  1. VOLTAREN [Suspect]
     Indication: PAIN
     Dosage: 50 MG/DAY
     Route: 048
     Dates: start: 20080625, end: 20080708
  2. INDAPAMIDE [Interacting]
     Indication: HYPERTENSION
     Dosage: 2MG/0.625 MG, UNK
     Route: 048
  3. FUROSEMIDE [Interacting]
     Indication: HYPERTENSION
     Dosage: UNK
     Route: 048
  4. PLAVIX [Concomitant]
  5. AMLOR [Concomitant]
  6. MIRTAZAPINE [Concomitant]
  7. GALANTAMINE HYDROBROMIDE [Concomitant]
  8. LEVOTHYROX [Concomitant]
  9. OROCAL [Concomitant]
  10. RISPERDAL [Concomitant]

REACTIONS (2)
  - DRUG INTERACTION [None]
  - RENAL FAILURE ACUTE [None]
